FAERS Safety Report 7434452-X (Version None)
Quarter: 2011Q2

REPORT INFORMATION
  Report Type: 
  Country: None (occurrence: None)
  Receive Date: 20110415
  Receipt Date: 20110330
  Transmission Date: 20111010
  Serious: Yes (Hospitalization, Other)
  Sender: FDA-Public Use
  Company Number: AUR-APL-2011-01215

PATIENT
  Age: 65 Year
  Sex: Female

DRUGS (2)
  1. SERTRALINE HYDROCHLORIDE [Suspect]
     Indication: BIPOLAR I DISORDER
     Dosage: 50 MG, DAILY
  2. RISPERIDONE [Suspect]
     Indication: BIPOLAR DISORDER
     Dosage: 1 MG TO 3 MG, DAILY

REACTIONS (10)
  - ATAXIA [None]
  - MOVEMENT DISORDER [None]
  - AGITATION [None]
  - APHAGIA [None]
  - INAPPROPRIATE ANTIDIURETIC HORMONE SECRETION [None]
  - FLUID INTAKE REDUCED [None]
  - HYPONATRAEMIA [None]
  - CONFUSIONAL STATE [None]
  - BEDRIDDEN [None]
  - APHASIA [None]
